FAERS Safety Report 9618751 (Version 4)
Quarter: 2014Q1

REPORT INFORMATION
  Report Type: Spontaneous
  Country: US (occurrence: US)
  Receive Date: 20131014
  Receipt Date: 20140211
  Transmission Date: 20141002
  Serious: Yes (Hospitalization, Other)
  Sender: FDA-Public Use
  Company Number: US-SA-2013SA101171

PATIENT
  Age: 54 Year
  Sex: Male
  Weight: 95.25 kg

DRUGS (11)
  1. COENZYME Q10 [Concomitant]
  2. LOVENOX [Concomitant]
     Dosage: DOSE:10 MILLIGRAM(S)/MILLILITRE
     Route: 058
     Dates: start: 20130930, end: 20131005
  3. PEPCID [Concomitant]
     Dates: start: 20130930, end: 20131005
  4. MILK OF MAGNESIA [Concomitant]
     Dates: start: 20130930, end: 20131005
  5. GLUCOSE [Concomitant]
     Dosage: 0.45 % NACL AND KCL 20 MEQ/L BY IV 1000 ML
     Dates: start: 20130930, end: 20131005
  6. LUMIZYME [Suspect]
     Indication: GLYCOGEN STORAGE DISEASE TYPE II
     Dosage: DOSE: 1950 MG
     Route: 042
     Dates: start: 20061026, end: 20131001
  7. LUMIZYME [Suspect]
     Indication: GLYCOGEN STORAGE DISEASE TYPE II
     Route: 042
     Dates: start: 20131003
  8. HYDROCHLOROTHIAZIDE [Concomitant]
     Indication: HYPERTENSION
     Dates: start: 201203
  9. LISINOPRIL [Concomitant]
     Indication: HYPERTENSION
     Dates: start: 201203
  10. LISINOPRIL [Concomitant]
     Indication: HYPERTENSION
     Dates: start: 20130930, end: 20131005
  11. VITAMIN D3 [Concomitant]
     Dosage: 1000 IU/600 MG

REACTIONS (10)
  - Deep vein thrombosis [Recovered/Resolved]
  - Pulmonary embolism [Recovered/Resolved]
  - Bronchitis [Recovered/Resolved]
  - Winged scapula [Unknown]
  - Progressive bulbar palsy [Unknown]
  - Tongue paralysis [Unknown]
  - Dysphagia [Unknown]
  - Dry mouth [Unknown]
  - Eye disorder [Unknown]
  - Eyelid ptosis [Unknown]
